FAERS Safety Report 6382424-9 (Version None)
Quarter: 2009Q3

REPORT INFORMATION
  Report Type: 
  Country: None (occurrence: None)
  Receive Date: 20090930
  Receipt Date: 20090918
  Transmission Date: 20100115
  Serious: Yes (Hospitalization)
  Sender: FDA-Public Use
  Company Number: CH-ELI_LILLY_AND_COMPANY-CH200909004313

PATIENT
  Age: 44 Year
  Sex: Male
  Weight: 70 kg

DRUGS (4)
  1. ZYPREXA [Suspect]
     Indication: SCHIZOPHRENIA
     Dosage: 15 MG, DAILY (1/D)
     Dates: start: 20070101
  2. ZYPREXA [Suspect]
     Dosage: 10 MG, EACH MORNING
     Dates: start: 20090101
  3. ZYPREXA [Suspect]
     Dosage: 20 MG, EACH EVENING
     Dates: start: 20090101
  4. VALIUM [Concomitant]
     Dosage: 10 MG, UNKNOWN
     Dates: start: 20090911

REACTIONS (6)
  - DELUSION [None]
  - HALLUCINATION [None]
  - MANIA [None]
  - OVERDOSE [None]
  - PSYCHIATRIC DECOMPENSATION [None]
  - SCHIZOPHRENIA [None]
